FAERS Safety Report 8175426-3 (Version None)
Quarter: 2012Q1

REPORT INFORMATION
  Report Type: 
  Country: None (occurrence: None)
  Receive Date: 20120229
  Receipt Date: 20120220
  Transmission Date: 20120608
  Serious: Yes (Disabling)
  Sender: FDA-Public Use
  Company Number: US-ASTRAZENECA-2011SE76350

PATIENT
  Age: 48 Year
  Sex: Female
  Weight: 90.7 kg

DRUGS (10)
  1. SYMBICORT [Suspect]
     Indication: ASTHMA
     Dosage: TWO PUFFS TWO TIMES A DAY
     Route: 055
  2. PRAVASTATIN SODIUM [Concomitant]
     Indication: BLOOD CHOLESTEROL ABNORMAL
  3. RHINOCORT [Suspect]
     Indication: RHINITIS ALLERGIC
     Route: 045
  4. IPRATROPIUM BROMIDE [Concomitant]
     Indication: ASTHMA
     Route: 055
  5. ALBUTEROL PUMP [Concomitant]
     Indication: ASTHMA
     Dosage: 3 ML EVERY FOUR HOURS AS NEEDED
     Route: 055
  6. ALBUTEROL VIALS [Concomitant]
     Dosage: FOR NEBULIZERS AS NEEDED
  7. ZERTEC [Concomitant]
     Indication: HYPERSENSITIVITY
     Dosage: ONE TABLET A DAY
  8. ACCOLATE [Suspect]
     Indication: ASTHMA
     Route: 048
  9. RHINOCORT [Suspect]
     Indication: UPPER RESPIRATORY TRACT CONGESTION
     Route: 045
  10. CAPTOPRIL [Concomitant]

REACTIONS (2)
  - NASOPHARYNGITIS [None]
  - ASTHMA [None]
